FAERS Safety Report 25853164 (Version 2)
Quarter: 2025Q4

REPORT INFORMATION
  Report Type: Spontaneous
  Country: EU (occurrence: EU)
  Receive Date: 20250926
  Receipt Date: 20251002
  Transmission Date: 20260118
  Serious: Yes (Other)
  Sender: SAMSUNG BIOEPIS
  Company Number: EU-SAMSUNG BIOEPIS-SB-2025-32257

PATIENT
  Age: 19 Year
  Sex: Male

DRUGS (2)
  1. ADALIMUMAB [Suspect]
     Active Substance: ADALIMUMAB
     Indication: Crohn^s disease
     Dosage: FOR OVER TWO YEARS
  2. ADALIMUMAB [Suspect]
     Active Substance: ADALIMUMAB

REACTIONS (5)
  - Corneal neovascularisation [Recovering/Resolving]
  - Ocular rosacea [Recovering/Resolving]
  - Meibomian gland dysfunction [Unknown]
  - Rosacea [Recovering/Resolving]
  - Inappropriate schedule of product administration [Unknown]
